FAERS Safety Report 12525762 (Version 2)
Quarter: 2016Q4

REPORT INFORMATION
  Report Type: Spontaneous
  Country: FR (occurrence: FR)
  Receive Date: 20160705
  Receipt Date: 20161019
  Transmission Date: 20170207
  Serious: Yes (Hospitalization)
  Sender: FDA-Public Use
  Company Number: FR-UCBSA-2016024972

PATIENT
  Age: 33 Year
  Sex: Female

DRUGS (8)
  1. KEPPRA [Suspect]
     Active Substance: LEVETIRACETAM
     Indication: SEIZURE
     Dosage: 500 MG, 2X/DAY (BID) (ONE TABLET IN THE MORNING, ONE AT NIGHT)
     Route: 048
     Dates: start: 20160528, end: 20160603
  2. PROZAC [Concomitant]
     Active Substance: FLUOXETINE HYDROCHLORIDE
     Indication: PRODUCT USED FOR UNKNOWN INDICATION
     Dosage: 1 TABLET
  3. LAMOTRIGINE. [Concomitant]
     Active Substance: LAMOTRIGINE
     Indication: PRODUCT USED FOR UNKNOWN INDICATION
     Dosage: 25 MG, ONCE DAILY (QD)
     Dates: end: 20160728
  4. URBANYL [Suspect]
     Active Substance: CLOBAZAM
     Indication: PRODUCT USED FOR UNKNOWN INDICATION
     Dosage: 10 MG, ONCE DAILY (QD) (AT NIGHT)
     Route: 048
     Dates: start: 20160528
  5. THERALENE [Concomitant]
     Active Substance: TRIMEPRAZINE
     Indication: PRODUCT USED FOR UNKNOWN INDICATION
     Dosage: 20 DROPS
  6. VALIUM [Concomitant]
     Active Substance: DIAZEPAM
     Indication: PRODUCT USED FOR UNKNOWN INDICATION
     Dosage: 30 DROPS, 3/DAY
  7. SERESTA [Concomitant]
     Active Substance: OXAZEPAM
     Indication: PRODUCT USED FOR UNKNOWN INDICATION
     Dosage: 100 MG
  8. ZOLPIDEM [Concomitant]
     Active Substance: ZOLPIDEM\ZOLPIDEM TARTRATE
     Indication: PRODUCT USED FOR UNKNOWN INDICATION
     Dosage: 2 TABLET

REACTIONS (3)
  - Depressed mood [Not Recovered/Not Resolved]
  - Retrograde amnesia [Recovered/Resolved]
  - Catatonia [Recovered/Resolved]

NARRATIVE: CASE EVENT DATE: 20160528
